FAERS Safety Report 24636325 (Version 1)
Quarter: 2024Q4

REPORT INFORMATION
  Report Type: Spontaneous
  Country: US (occurrence: None)
  Receive Date: 20241119
  Receipt Date: 20241119
  Transmission Date: 20250114
  Serious: Yes (Hospitalization, Other)
  Sender: EMMAUS LIFE SCIENCES
  Company Number: US-Emmaus Medical, Inc.-EMM202411-000506

PATIENT
  Age: 22 Year
  Sex: Male

DRUGS (1)
  1. ENDARI [Suspect]
     Active Substance: GLUTAMINE
     Indication: Sickle cell disease
     Dosage: 15 G
     Route: 048

REACTIONS (4)
  - Osteonecrosis [Unknown]
  - Hip fracture [Unknown]
  - Pain [Unknown]
  - Transfusion [Unknown]

NARRATIVE: CASE EVENT DATE: 20240801
